FAERS Safety Report 6882868-2 (Version None)
Quarter: 2010Q3

REPORT INFORMATION
  Report Type: 
  Country: None (occurrence: None)
  Receive Date: 20100727
  Receipt Date: 20100713
  Transmission Date: 20110219
  Serious: Yes (Disabling)
  Sender: FDA-Public Use
  Company Number: S03-DEN-04175-01

PATIENT
  Age: 59 Year
  Sex: Male
  Weight: 75 kg

DRUGS (5)
  1. MEMANTINE (MEMANTINE, MEMANTINE HYDROCHLORIDE) (TABLETS) [Suspect]
     Indication: DEMENTIA ALZHEIMER'S TYPE
     Dosage: 20 MG 910 MG, 2 IN 1 D), ORAL
     Route: 048
     Dates: start: 20021021, end: 20030414
  2. DELESPINE (VALPROATE SODIUM) (VALPROATE SODIUM) [Concomitant]
  3. ZOLOFT [Concomitant]
  4. OXAZEPAM (OXAZEPAM) (OXAZEPAM) [Concomitant]
  5. VIOXX (ROFECOXIB) (ROFECOXIB) [Concomitant]

REACTIONS (3)
  - CONDITION AGGRAVATED [None]
  - CONVULSION [None]
  - CONVULSIVE THRESHOLD LOWERED [None]
